FAERS Safety Report 21861052 (Version 3)
Quarter: 2023Q1

REPORT INFORMATION
  Report Type: Spontaneous
  Country: CA (occurrence: CA)
  Receive Date: 20230113
  Receipt Date: 20230124
  Transmission Date: 20230417
  Serious: Yes (Death, Hospitalization, Other)
  Sender: FDA-Public Use
  Company Number: CA-GLAXOSMITHKLINE-CA2022AMR199240

PATIENT

DRUGS (1)
  1. ZEJULA [Suspect]
     Active Substance: NIRAPARIB
     Indication: Ovarian cancer recurrent
     Dosage: 200 MG, QD
     Route: 048
     Dates: start: 20210929, end: 20211015

REACTIONS (9)
  - Death [Fatal]
  - Infection [Unknown]
  - Laboratory test abnormal [Unknown]
  - Mucosal inflammation [Unknown]
  - Appetite disorder [Unknown]
  - Haemorrhage [Unknown]
  - Febrile neutropenia [Unknown]
  - Hypoxia [Unknown]
  - Cerebrovascular accident [Unknown]

NARRATIVE: CASE EVENT DATE: 20211019
